FAERS Safety Report 4442078-5 (Version None)
Quarter: 2004Q3

REPORT INFORMATION
  Report Type: 
  Country: None (occurrence: None)
  Receive Date: 20040907
  Receipt Date: 20040903
  Transmission Date: 20050211
  Serious: Yes (Life-Threatening)
  Sender: FDA-Public Use
  Company Number: PHBS2004CA11668

PATIENT
  Sex: Male

DRUGS (1)
  1. DIOVAN HCT [Suspect]
     Dosage: VAL 160 / HCT 12.5 MG/DAY
     Route: 048
     Dates: start: 20020801, end: 20021101

REACTIONS (4)
  - DEHYDRATION [None]
  - DIARRHOEA [None]
  - DRUG LEVEL INCREASED [None]
  - LOSS OF CONSCIOUSNESS [None]
